FAERS Safety Report 7834000-6 (Version None)
Quarter: 2011Q4

REPORT INFORMATION
  Report Type: 
  Country: None (occurrence: None)
  Receive Date: 20111024
  Receipt Date: 20111021
  Transmission Date: 20120403
  Serious: Yes (Hospitalization, Other)
  Sender: FDA-Public Use
  Company Number: US-JNJFOC-20100807355

PATIENT
  Sex: Female

DRUGS (12)
  1. LEVAQUIN [Suspect]
     Indication: CELLULITIS
     Route: 048
     Dates: start: 19990101, end: 20070801
  2. LEVAQUIN [Suspect]
     Route: 042
     Dates: start: 20070128
  3. LEVAQUIN [Suspect]
     Route: 042
     Dates: start: 20091124
  4. LEVAQUIN [Suspect]
     Indication: PNEUMONIA
     Route: 042
     Dates: start: 20061020
  5. LEVAQUIN [Suspect]
     Indication: BRONCHITIS
     Route: 048
     Dates: start: 19990101, end: 20070801
  6. LEVAQUIN [Suspect]
     Route: 042
     Dates: start: 20070128
  7. LEVAQUIN [Suspect]
     Route: 042
     Dates: start: 20080201
  8. LEVAQUIN [Suspect]
     Route: 065
     Dates: start: 20090226
  9. LEVAQUIN [Suspect]
     Route: 042
     Dates: start: 20061020
  10. LEVAQUIN [Suspect]
     Route: 042
     Dates: start: 20091124
  11. LEVAQUIN [Suspect]
     Indication: INFECTION
     Route: 048
     Dates: start: 19990101, end: 20070801
  12. LEVAQUIN [Suspect]
     Route: 042
     Dates: start: 20080201

REACTIONS (4)
  - TENDON RUPTURE [None]
  - DEPRESSION [None]
  - ANKLE FRACTURE [None]
  - LIGAMENT RUPTURE [None]
